FAERS Safety Report 4863367-6 (Version None)
Quarter: 2005Q4

REPORT INFORMATION
  Report Type: 
  Country: None (occurrence: None)
  Receive Date: 20051222
  Receipt Date: 20041101
  Transmission Date: 20060501
  Serious: No
  Sender: FDA-Public Use
  Company Number: US-GLAXOSMITHKLINE-A0532036A

PATIENT
  Age: 81 Year
  Sex: Female

DRUGS (1)
  1. FLONASE [Suspect]
     Dosage: 4SPR PER DAY
     Route: 045
     Dates: start: 20041030, end: 20041031

REACTIONS (2)
  - INITIAL INSOMNIA [None]
  - NIGHTMARE [None]
